FAERS Safety Report 24548078 (Version 1)
Quarter: 2024Q4

REPORT INFORMATION
  Report Type: Spontaneous
  Country: DE (occurrence: DE)
  Receive Date: 20241025
  Receipt Date: 20241025
  Transmission Date: 20250115
  Serious: No
  Sender: ALKEM
  Company Number: DE-ALKEM LABORATORIES LIMITED-DE-ALKEM-2024-17489

PATIENT
  Age: 42 Year
  Sex: Female

DRUGS (6)
  1. CLOBAZAM [Interacting]
     Active Substance: CLOBAZAM
     Indication: Frontal lobe epilepsy
     Dosage: 20 MILLIGRAM, QD
     Route: 065
  2. CLOBAZAM [Interacting]
     Active Substance: CLOBAZAM
     Indication: Injury
     Dosage: UNK, DOSE REDUCED
     Route: 065
  3. CENOBAMATE [Interacting]
     Active Substance: CENOBAMATE
     Indication: Frontal lobe epilepsy
     Dosage: 150 MILLIGRAM
     Route: 065
  4. CENOBAMATE [Interacting]
     Active Substance: CENOBAMATE
     Indication: Injury
  5. LAMOTRIGINE [Concomitant]
     Active Substance: LAMOTRIGINE
     Indication: Frontal lobe epilepsy
     Dosage: UNK
     Route: 065
  6. LAMOTRIGINE [Concomitant]
     Active Substance: LAMOTRIGINE
     Indication: Injury

REACTIONS (3)
  - Drug level increased [Unknown]
  - Drug interaction [Unknown]
  - Fatigue [Recovering/Resolving]
